FAERS Safety Report 17454340 (Version 1)
Quarter: 2020Q1

REPORT INFORMATION
  Report Type: Spontaneous
  Country: US (occurrence: US)
  Receive Date: 20200224
  Receipt Date: 20200224
  Transmission Date: 20200409
  Serious: Yes (Other)
  Sender: FDA-Public Use
  Company Number: None

PATIENT
  Age: 60 Year
  Sex: Male
  Weight: 131.5 kg

DRUGS (5)
  1. GLIMPERIDIE 2MG [Concomitant]
  2. OXYCODONE 30MG [Concomitant]
     Active Substance: OXYCODONE
  3. LONSURF [Suspect]
     Active Substance: TIPIRACIL HYDROCHLORIDE\TRIFLURIDINE
     Indication: COLON CANCER
     Dosage: ?          OTHER FREQUENCY:BID 1-5 + 8-12 DAY;?
     Route: 048
     Dates: start: 20191203, end: 20200224
  4. CAPECITABINE. [Concomitant]
     Active Substance: CAPECITABINE
     Dates: end: 20171120
  5. LOSARTAN 50MG [Concomitant]
     Active Substance: LOSARTAN

REACTIONS (3)
  - Fatigue [None]
  - Nausea [None]
  - Vomiting [None]
